FAERS Safety Report 12781873 (Version 1)
Quarter: 2016Q3

REPORT INFORMATION
  Report Type: Report from Study
  Country: US (occurrence: US)
  Receive Date: 20160926
  Receipt Date: 20160926
  Transmission Date: 20161109
  Serious: No
  Sender: FDA-Public Use
  Company Number: US-AMGEN-USASL2016129347

PATIENT
  Age: 74 Year
  Sex: Female

DRUGS (1)
  1. ENBREL [Suspect]
     Active Substance: ETANERCEPT
     Indication: RHEUMATOID ARTHRITIS
     Dosage: UNK UNK, WEEKLY
     Route: 065
     Dates: start: 2009

REACTIONS (3)
  - Injection site haemorrhage [Unknown]
  - Injection site pain [Unknown]
  - Injection site extravasation [Unknown]
